FAERS Safety Report 13059056 (Version 9)
Quarter: 2020Q1

REPORT INFORMATION
  Report Type: Other
  Country: CA (occurrence: CA)
  Receive Date: 20161223
  Receipt Date: 20200327
  Transmission Date: 20200409
  Serious: Yes (Other)
  Sender: FDA-Public Use
  Company Number: CA-APOTEX-2016AP015753

PATIENT
  Age: 72 Year
  Sex: Female

DRUGS (21)
  1. SULFASALAZINE. [Suspect]
     Active Substance: SULFASALAZINE
     Indication: RHEUMATOID ARTHRITIS
     Dosage: 2 MG, UNK
     Route: 065
  2. CELEBREX [Suspect]
     Active Substance: CELECOXIB
     Indication: ARTHRITIS
     Dosage: UNK
     Route: 065
  3. LEFLUNOMIDE. [Suspect]
     Active Substance: LEFLUNOMIDE
     Indication: RHEUMATOID ARTHRITIS
     Dosage: 10 MG, UNK
     Route: 048
  4. LEFLUNOMIDE. [Suspect]
     Active Substance: LEFLUNOMIDE
     Dosage: 20 MG, UNK
  5. APO-PREDNISONE [Suspect]
     Active Substance: PREDNISONE
     Indication: RHEUMATOID ARTHRITIS
     Dosage: UNK
     Route: 065
  6. ARAVA [Suspect]
     Active Substance: LEFLUNOMIDE
     Indication: ARTHRITIS
     Dosage: UNK
     Route: 065
  7. CELEBREX [Suspect]
     Active Substance: CELECOXIB
     Indication: RHEUMATOID ARTHRITIS
  8. METHOTREXATE. [Suspect]
     Active Substance: METHOTREXATE
     Dosage: 25 MG, UNK
     Route: 058
  9. RITUXAN [Suspect]
     Active Substance: RITUXIMAB
     Indication: RHEUMATOID ARTHRITIS
     Dosage: UNK
     Route: 042
  10. SULFASALAZINE. [Suspect]
     Active Substance: SULFASALAZINE
     Dosage: 2 G, UNK
     Route: 065
  11. APO-LEFLUNOMIDE [Suspect]
     Active Substance: LEFLUNOMIDE
     Indication: RHEUMATOID ARTHRITIS
     Dosage: 10 MG, UNK
     Route: 048
  12. ARAVA [Suspect]
     Active Substance: LEFLUNOMIDE
     Indication: RHEUMATOID ARTHRITIS
     Dosage: 10 MG, UNK
     Route: 065
  13. METHOTREXATE. [Suspect]
     Active Substance: METHOTREXATE
     Indication: RHEUMATOID ARTHRITIS
     Dosage: 20 MG, UNK
     Route: 058
  14. ORENCIA [Suspect]
     Active Substance: ABATACEPT
     Indication: RHEUMATOID ARTHRITIS
     Dosage: 250 MG, UNK
     Route: 058
  15. PREDNISONE. [Suspect]
     Active Substance: PREDNISONE
     Indication: ARTHRITIS
     Dosage: UNK
     Route: 065
  16. HYDROXYCHLOROQUINE [Suspect]
     Active Substance: HYDROXYCHLOROQUINE
     Indication: RHEUMATOID ARTHRITIS
     Dosage: 300 MG, UNK
     Route: 065
  17. METHOTREXATE. [Suspect]
     Active Substance: METHOTREXATE
     Dosage: 10 MG, UNK
     Route: 058
  18. PREDNISONE. [Suspect]
     Active Substance: PREDNISONE
     Indication: RHEUMATOID ARTHRITIS
  19. ARAVA [Suspect]
     Active Substance: LEFLUNOMIDE
     Dosage: 20 MG, UNK
     Route: 065
  20. METHOTREXATE. [Suspect]
     Active Substance: METHOTREXATE
     Dosage: 2.5 MG, UNK
     Route: 058
  21. ENBREL [Suspect]
     Active Substance: ETANERCEPT
     Indication: RHEUMATOID ARTHRITIS
     Dosage: 50 MG, Q.WK.
     Route: 058

REACTIONS (17)
  - Therapeutic product effect decreased [Not Recovered/Not Resolved]
  - Drug ineffective [Not Recovered/Not Resolved]
  - Neoplasm malignant [Not Recovered/Not Resolved]
  - Peripheral swelling [Not Recovered/Not Resolved]
  - Pain [Not Recovered/Not Resolved]
  - Candida infection [Not Recovered/Not Resolved]
  - Drug interaction [Not Recovered/Not Resolved]
  - Rheumatoid arthritis [Not Recovered/Not Resolved]
  - Nausea [Not Recovered/Not Resolved]
  - Oral candidiasis [Not Recovered/Not Resolved]
  - Condition aggravated [Not Recovered/Not Resolved]
  - Swelling [Not Recovered/Not Resolved]
  - Hepatotoxicity [Not Recovered/Not Resolved]
  - Bone swelling [Not Recovered/Not Resolved]
  - Thyroid neoplasm [Not Recovered/Not Resolved]
  - Joint swelling [Not Recovered/Not Resolved]
  - Toxicity to various agents [Not Recovered/Not Resolved]
